FAERS Safety Report 6134961-X (Version None)
Quarter: 2009Q1

REPORT INFORMATION
  Report Type: 
  Country: None (occurrence: None)
  Receive Date: 20090325
  Receipt Date: 20090308
  Transmission Date: 20090719
  Serious: Yes (Other)
  Sender: FDA-Public Use
  Company Number: 2007S1000538

PATIENT
  Age: 62 Year
  Sex: Female

DRUGS (8)
  1. PHOSPHOSODA FLAVOR NOT SPECIFIED [Suspect]
     Indication: COLONOSCOPY
     Dosage: PO
     Route: 048
     Dates: start: 19990526
  2. TENORMIN [Concomitant]
  3. NORVASC [Concomitant]
  4. AYGESTIN [Concomitant]
  5. PREMARIN [Concomitant]
  6. SYNTHROID [Concomitant]
  7. WELLBUTRIN [Concomitant]
  8. AMLODIPINE [Concomitant]

REACTIONS (6)
  - ANXIETY [None]
  - DEHYDRATION [None]
  - DIZZINESS [None]
  - IMPAIRED WORK ABILITY [None]
  - INJURY [None]
  - RENAL FAILURE CHRONIC [None]
